FAERS Safety Report 22002630 (Version 2)
Quarter: 2023Q1

REPORT INFORMATION
  Report Type: Spontaneous
  Country: US (occurrence: None)
  Receive Date: 20230217
  Receipt Date: 20230314
  Transmission Date: 20230417
  Serious: Yes (Other)
  Sender: FDA-Public Use
  Company Number: US-Merck Healthcare KGaA-9383629

PATIENT
  Age: 43 Year
  Sex: Male

DRUGS (1)
  1. SEROSTIM [Suspect]
     Active Substance: SOMATROPIN
     Indication: Cachexia
     Route: 058
     Dates: start: 202206

REACTIONS (2)
  - Gastric perforation [Unknown]
  - Gastric ulcer helicobacter [Recovering/Resolving]

NARRATIVE: CASE EVENT DATE: 20230201
